FAERS Safety Report 4396821-4 (Version None)
Quarter: 2004Q2

REPORT INFORMATION
  Report Type: 
  Country: None (occurrence: None)
  Receive Date: 20040621
  Receipt Date: 20040316
  Transmission Date: 20050107
  Serious: Yes (Other)
  Sender: FDA-Public Use
  Company Number: USA-2004-0013945

PATIENT
  Age: 19 Year
  Sex: Female

DRUGS (3)
  1. OXYCONTIN [Suspect]
     Dosage: MG,
  2. COCAINE (COCAINE) [Suspect]
     Dosage: MG,
  3. HEROIN (DIAMORPHINE) [Suspect]
     Dosage: MG,

REACTIONS (2)
  - DRUG DEPENDENCE [None]
  - POLYSUBSTANCE ABUSE [None]
